FAERS Safety Report 8934592 (Version 3)
Quarter: 2013Q4

REPORT INFORMATION
  Report Type: Report from Study
  Country: US (occurrence: US)
  Receive Date: 20121129
  Receipt Date: 20131024
  Transmission Date: 20140711
  Serious: Yes (Hospitalization)
  Sender: FDA-Public Use
  Company Number: US-ACTELION-A-NJ2012-74207

PATIENT
  Age: 50 Year
  Sex: Male

DRUGS (11)
  1. TRACLEER [Suspect]
     Indication: PULMONARY ARTERIAL HYPERTENSION
     Dosage: 125 MG, BID
     Route: 048
     Dates: start: 2008, end: 201309
  2. SILDENAFIL [Concomitant]
     Dosage: 100 MG, TID
     Dates: start: 2005
  3. COUMADIN [Concomitant]
     Dosage: 6 MG, 6 TIMES WEEKLY
     Dates: start: 2005
  4. COUMADIN [Concomitant]
     Dosage: 9 MG, ONCE A WEEK
     Dates: start: 2005
  5. LASIX [Concomitant]
     Dosage: 20 MG, BID
     Dates: start: 201309
  6. POTASSIUM [Concomitant]
     Dosage: 1 TABLET DAILY
     Dates: start: 201309
  7. HYDROMORPHONE [Concomitant]
     Dosage: 4 MG, QID
     Dates: start: 2012
  8. ZOLOFT [Concomitant]
     Dosage: 200 MG, QD
     Dates: start: 2008
  9. VITAMIN B12 [Concomitant]
     Dosage: 1000 MG, QD
     Dates: start: 2010
  10. VITAMIN D3 [Concomitant]
     Dosage: 1000 MG, QD
     Dates: start: 2010
  11. DOCUSATE [Concomitant]
     Dosage: 200 MG, QD
     Dates: start: 2010

REACTIONS (3)
  - Liver function test abnormal [Not Recovered/Not Resolved]
  - Dyspnoea [Unknown]
  - Fatigue [Not Recovered/Not Resolved]
